FAERS Safety Report 6496553-2 (Version None)
Quarter: 2009Q4

REPORT INFORMATION
  Report Type: 
  Country: None (occurrence: None)
  Receive Date: 20091210
  Receipt Date: 20091202
  Transmission Date: 20100525
  Serious: Yes (Other)
  Sender: FDA-Public Use
  Company Number: 2009US004269

PATIENT
  Sex: Male

DRUGS (3)
  1. AMBISOME [Suspect]
     Indication: INFECTION
     Dosage: 50 MG, /D, IV NOS
     Route: 042
     Dates: start: 20080916
  2. MEROPENEM [Concomitant]
  3. PULMOZYME [Concomitant]

REACTIONS (4)
  - BODY TEMPERATURE INCREASED [None]
  - DYSPNOEA [None]
  - HEART RATE INCREASED [None]
  - SKIN BURNING SENSATION [None]
